FAERS Safety Report 8958986 (Version 2)
Quarter: 2012Q4

REPORT INFORMATION
  Report Type: 
  Country: JP (occurrence: JP)
  Receive Date: 20121212
  Receipt Date: 20121220
  Transmission Date: 20130627
  Serious: Yes (Death, Hospitalization)
  Sender: FDA-Public Use
  Company Number: PHHY2012JP114203

PATIENT
  Weight: 89 kg

DRUGS (3)
  1. CICLOSPORIN [Suspect]
     Indication: INTERSTITIAL LUNG DISEASE
     Dosage: 100 mg, QD
  2. CICLOSPORIN [Suspect]
     Dosage: 150 mg, QD
  3. PREDNISOLONE [Suspect]
     Indication: INTERSTITIAL LUNG DISEASE
     Dosage: 30 mg, QD

REACTIONS (2)
  - Hepatic failure [Fatal]
  - Acute hepatitis B [Fatal]
